FAERS Safety Report 6567717-4 (Version None)
Quarter: 2010Q1

REPORT INFORMATION
  Report Type: 
  Country: None (occurrence: None)
  Receive Date: 20100203
  Receipt Date: 20100122
  Transmission Date: 20100710
  Serious: Yes (Death, Hospitalization)
  Sender: FDA-Public Use
  Company Number: PH-PFIZER INC-2009312275

PATIENT
  Age: 66 Year
  Sex: Female
  Weight: 54 kg

DRUGS (5)
  1. SUNITINIB MALATE [Suspect]
     Indication: HEPATIC NEOPLASM MALIGNANT
     Dosage: 25 MG, 1X/DAY
     Route: 048
     Dates: start: 20090619, end: 20091218
  2. LANOXIN [Concomitant]
     Indication: CARDIAC FAILURE CONGESTIVE
     Dosage: 0.25 MG, 1X/DAY
     Dates: start: 20090925
  3. PLAVIX [Concomitant]
     Indication: CARDIAC FAILURE CONGESTIVE
     Dosage: 0.5 MG, 1X/DAY
     Dates: start: 20090925
  4. IMDUR [Concomitant]
     Indication: CORONARY ARTERY DISEASE
     Dosage: 30 MG, 1X/DAY
     Dates: start: 20090301
  5. CARNITINE [Concomitant]
     Indication: CARDIAC FAILURE CONGESTIVE
     Dosage: 1 TABLET, 3X/DAY
     Dates: start: 20090925

REACTIONS (2)
  - CARDIO-RESPIRATORY ARREST [None]
  - HAEMATURIA [None]
